FAERS Safety Report 17851627 (Version 1)
Quarter: 2020Q2

REPORT INFORMATION
  Report Type: Spontaneous
  Country: CA (occurrence: CA)
  Receive Date: 20200602
  Receipt Date: 20200602
  Transmission Date: 20200714
  Serious: Yes (Other)
  Sender: FDA-Public Use
  Company Number: CA-SAMSUNG BIOEPIS-SB-2020-18202

PATIENT
  Age: 30 Year
  Sex: Female

DRUGS (1)
  1. INFLIXIMAB [Suspect]
     Active Substance: INFLIXIMAB
     Indication: CROHN^S DISEASE
     Route: 042

REACTIONS (6)
  - Condition aggravated [Unknown]
  - Fistula discharge [Unknown]
  - Proctalgia [Unknown]
  - Therapeutic product effect incomplete [Unknown]
  - Anal fistula [Unknown]
  - Rectal haemorrhage [Unknown]
